FAERS Safety Report 5633185-X (Version None)
Quarter: 2008Q1

REPORT INFORMATION
  Report Type: 
  Country: None (occurrence: None)
  Receive Date: 20080215
  Receipt Date: 20080129
  Transmission Date: 20080703
  Serious: No
  Sender: FDA-Public Use
  Company Number: 02100-JPN-07-0163

PATIENT
  Age: 73 Year
  Sex: Male
  Weight: 60 kg

DRUGS (7)
  1. PLETAAL (CILOSTAZOL) (CODE NOT BROKEN) TABLET, 100 MG [Suspect]
     Indication: CEREBRAL INFARCTION
     Dosage: 100 MG, BID
     Route: 048
     Dates: start: 20050927
  2. PLETAL [Suspect]
     Indication: CEREBRAL INFARCTION
     Dosage: 81 MG, QD
     Route: 048
     Dates: start: 20050927
  3. CANDESARTAN CILEXETIL [Concomitant]
  4. NORVASC [Concomitant]
  5. FAMOTIDINE [Concomitant]
  6. INNOLET 30R (INSULIN HUMAN (GENETICAL RECOMBINATION)) [Concomitant]
  7. ROHYPNOL (FLUNITRAZEPAM) [Concomitant]

REACTIONS (9)
  - BLOOD CHLORIDE INCREASED [None]
  - BLOOD CREATININE INCREASED [None]
  - BLOOD GLUCOSE INCREASED [None]
  - BLOOD UREA INCREASED [None]
  - BLOOD URIC ACID INCREASED [None]
  - DEHYDRATION [None]
  - DIARRHOEA [None]
  - HYPOGLYCAEMIA [None]
  - INFECTION MASKED [None]
